FAERS Safety Report 8309632-1 (Version None)
Quarter: 2012Q2

REPORT INFORMATION
  Report Type: 
  Country: None (occurrence: None)
  Receive Date: 20120425
  Receipt Date: 20120416
  Transmission Date: 20120825
  Serious: Yes (Life-Threatening, Hospitalization, Other)
  Sender: FDA-Public Use
  Company Number: US-JNJFOC-20120207500

PATIENT
  Sex: Female
  Weight: 45.5 kg

DRUGS (4)
  1. BENADRYL [Concomitant]
     Indication: PREMEDICATION
     Route: 065
  2. REMICADE [Suspect]
     Indication: CROHN'S DISEASE
     Route: 042
  3. STEROIDS NOS [Concomitant]
     Indication: PREMEDICATION
     Route: 065
  4. REMICADE [Suspect]
     Route: 042
     Dates: start: 20120123

REACTIONS (5)
  - POST PROCEDURAL INFECTION [None]
  - PLEURAL EFFUSION [None]
  - WOUND DEHISCENCE [None]
  - SMALL INTESTINAL PERFORATION [None]
  - SEPTIC SHOCK [None]
